FAERS Safety Report 10161861 (Version 1)
Quarter: 2014Q2

REPORT INFORMATION
  Report Type: Spontaneous
  Country: FR (occurrence: FR)
  Receive Date: 20140509
  Receipt Date: 20140509
  Transmission Date: 20141212
  Serious: Yes (Hospitalization, Disabling)
  Sender: FDA-Public Use
  Company Number: FR-JNJFOC-20140502996

PATIENT
  Age: 74 Year
  Sex: Male

DRUGS (9)
  1. XARELTO [Suspect]
     Indication: EMBOLISM VENOUS
     Route: 048
     Dates: start: 20140107
  2. XARELTO [Suspect]
     Indication: EMBOLISM VENOUS
     Route: 048
     Dates: start: 20131218, end: 20140107
  3. XARELTO [Suspect]
     Indication: DEEP VEIN THROMBOSIS
     Route: 048
     Dates: start: 20140107
  4. XARELTO [Suspect]
     Indication: DEEP VEIN THROMBOSIS
     Route: 048
     Dates: start: 20131218, end: 20140107
  5. AZATHIOPRINE [Concomitant]
     Route: 065
  6. IRBESARTAN [Concomitant]
     Route: 065
  7. ESOMEPRAZOLE [Concomitant]
     Route: 065
  8. ELISOR [Concomitant]
     Route: 065
  9. SPIRIVA [Concomitant]
     Route: 065

REACTIONS (4)
  - Monoplegia [Not Recovered/Not Resolved]
  - VIIth nerve paralysis [Not Recovered/Not Resolved]
  - Aphasia [Not Recovered/Not Resolved]
  - Drug ineffective [Not Recovered/Not Resolved]
